FAERS Safety Report 9566249 (Version 1)
Quarter: 2013Q3

REPORT INFORMATION
  Report Type: Spontaneous
  Country: JP (occurrence: JP)
  Receive Date: 20130930
  Receipt Date: 20130930
  Transmission Date: 20140515
  Serious: Yes (Hospitalization)
  Sender: FDA-Public Use
  Company Number: CHNY2013JP002089

PATIENT
  Sex: 0

DRUGS (1)
  1. PURSENNID [Suspect]
     Dosage: 72 MG, QD
     Route: 048

REACTIONS (1)
  - Overdose [Unknown]
